FAERS Safety Report 7125904-0 (Version None)
Quarter: 2010Q4

REPORT INFORMATION
  Report Type: 
  Country: None (occurrence: None)
  Receive Date: 20101129
  Receipt Date: 20101115
  Transmission Date: 20110411
  Serious: Yes (Hospitalization)
  Sender: FDA-Public Use
  Company Number: JP-ASTRAZENECA-2010SE52317

PATIENT
  Age: 75 Year
  Sex: Male
  Weight: 66 kg

DRUGS (13)
  1. SYMBICORT [Suspect]
     Indication: ASTHMA
     Dosage: 2 DF DAILY
     Route: 055
     Dates: start: 20101018, end: 20101018
  2. SYMBICORT [Suspect]
     Dosage: 60 DF FOR TWO DAYS
     Route: 055
     Dates: start: 20101019, end: 20101020
  3. SYMBICORT [Suspect]
     Route: 055
     Dates: start: 20101021, end: 20101030
  4. MOBIC [Concomitant]
     Indication: LUMBAR VERTEBRAL FRACTURE
     Route: 048
     Dates: start: 20070927
  5. AMLODIPINE [Concomitant]
     Indication: HYPERTENSION
     Route: 048
     Dates: start: 20090219
  6. KAITRON [Concomitant]
     Indication: CARDIAC FAILURE
     Route: 048
     Dates: start: 20090703
  7. OLMETEC [Concomitant]
     Indication: HYPERTENSION
     Route: 048
     Dates: start: 20091127
  8. NATRIX [Concomitant]
     Indication: HYPERTENSION
     Route: 048
     Dates: start: 20100204
  9. ALOSITOL [Concomitant]
     Indication: HYPERURICAEMIA
     Route: 048
     Dates: start: 20100630
  10. WARFARIN [Concomitant]
     Indication: ATRIAL FIBRILLATION
     Route: 048
     Dates: start: 20100820
  11. KEILASE A [Concomitant]
     Indication: GASTRITIS
     Dosage: THREE TIMES A DAY
     Route: 048
     Dates: start: 20100820
  12. ALVESCO [Concomitant]
     Indication: ASTHMA
     Dosage: DOSE UNKNOWN
     Route: 055
     Dates: start: 20100916, end: 20101018
  13. HOKUNALIN:TAPE [Concomitant]
     Indication: BRONCHITIS
     Route: 062
     Dates: start: 20100916

REACTIONS (3)
  - CARDIAC FAILURE CONGESTIVE [None]
  - OVERDOSE [None]
  - PLEURAL EFFUSION [None]
